FAERS Safety Report 14405662 (Version 10)
Quarter: 2020Q3

REPORT INFORMATION
  Report Type: Other
  Country: NO (occurrence: NO)
  Receive Date: 20180118
  Receipt Date: 20200811
  Transmission Date: 20201102
  Serious: Yes (Other)
  Sender: FDA-Public Use
  Company Number: NO-ROCHE-2052983

PATIENT
  Age: 43 Year
  Sex: Female

DRUGS (9)
  1. CAPECITABINE. [Suspect]
     Active Substance: CAPECITABINE
     Indication: INSULINOMA
     Dosage: UNK
     Route: 048
  2. TEMOZOLOMIDE. [Suspect]
     Active Substance: TEMOZOLOMIDE
     Indication: METASTASES TO LIVER
     Dosage: TEN YEARS POSTSURGERY
     Route: 048
  3. TEMOZOLOMIDE. [Suspect]
     Active Substance: TEMOZOLOMIDE
     Indication: INSULINOMA
     Dosage: FOR TWO YEARS
     Route: 048
  4. INSULIN [Concomitant]
     Active Substance: INSULIN NOS
     Dosage: 42?50 IU DAILY, GIVEN AS FOUR BOLUS DOSES AT MEALTIMES AND ONE BASAL DOSE AT BEDTIME
  5. INSULIN [Concomitant]
     Active Substance: INSULIN NOS
     Dosage: MEALTIME BOLUS DOSES WERE GRADUALLY REDUCED TO A TOTAL OF 8 IU PER DAY
  6. CAPECITABINE. [Suspect]
     Active Substance: CAPECITABINE
     Route: 048
  7. INSULIN [Concomitant]
     Active Substance: INSULIN NOS
     Dosage: BASAL/BOLUS REGIME OF 34 IU INSULIN DAILY
     Route: 048
  8. CAPECITABINE. [Suspect]
     Active Substance: CAPECITABINE
     Indication: METASTASES TO LIVER
     Route: 048
  9. INSULIN [Concomitant]
     Active Substance: INSULIN NOS
     Dosage: 28 IU DAILY

REACTIONS (2)
  - Product use in unapproved indication [Unknown]
  - Coeliac disease [Recovering/Resolving]
